FAERS Safety Report 15843233 (Version 1)
Quarter: 2019Q1

REPORT INFORMATION
  Report Type: Spontaneous
  Country: US (occurrence: US)
  Receive Date: 20190118
  Receipt Date: 20190118
  Transmission Date: 20190417
  Serious: Yes (Hospitalization)
  Sender: FDA-Public Use
  Company Number: None

PATIENT
  Age: 69 Year
  Sex: Female

DRUGS (2)
  1. NONE LISTED [Concomitant]
  2. ACTEMRA [Suspect]
     Active Substance: TOCILIZUMAB
     Indication: POLYMYALGIA RHEUMATICA
     Dosage: ?          OTHER FREQUENCY:ONCE WEEKLY;?
     Route: 058
     Dates: start: 20180119

REACTIONS (2)
  - Therapy cessation [None]
  - Surgery [None]

NARRATIVE: CASE EVENT DATE: 20181215
